FAERS Safety Report 16705794 (Version 1)
Quarter: 2019Q3

REPORT INFORMATION
  Report Type: Spontaneous
  Country: CH (occurrence: CH)
  Receive Date: 20190815
  Receipt Date: 20190815
  Transmission Date: 20191004
  Serious: Yes (Hospitalization, Other)
  Sender: FDA-Public Use
  Company Number: CH-CHEPLA-MYERS SQUIBB COMPANY-BMS-2018-103067

PATIENT
  Age: 40 Year
  Sex: Male

DRUGS (10)
  1. LIXIANA [Concomitant]
     Active Substance: EDOXABAN TOSYLATE
     Indication: PRODUCT USED FOR UNKNOWN INDICATION
     Dosage: 30 MG, QD, LIXIANA (EDOXABAN) FILM-COATED TABLETS 30 MG PERORAL 1-0-0-0 SINCE 03SEP2018
     Route: 048
     Dates: start: 20180903
  2. BLEOMYCIN [Suspect]
     Active Substance: BLEOMYCIN SULFATE
     Indication: TESTICULAR GERM CELL TUMOUR MIXED
     Dosage: 30 MG, REGIMEN #2
     Route: 065
     Dates: start: 20180920
  3. BLEOMYCIN [Suspect]
     Active Substance: BLEOMYCIN SULFATE
     Indication: TESTICULAR GERM CELL TUMOUR MIXED
     Dosage: 30 MG, REGIMEN #2
     Route: 065
     Dates: start: 20180903
  4. TEMESTA [Concomitant]
     Indication: PRODUCT USED FOR UNKNOWN INDICATION
     Dosage: 1 MG, TEMESTA (LORAZEPAM) TABLET 1 MG PERORAL 0-0-0-1
     Route: 048
  5. ALUCOL [Concomitant]
     Active Substance: ALUMINUM HYDROXIDE\MAGNESIUM HYDROXIDE
     Indication: PRODUCT USED FOR UNKNOWN INDICATION
     Dosage: 20 ML, ALUCOL GEL (MAGNESIUMHYDROXID, ALUMINIUMOXID) 3X 20 ML PERORAL SINCE 15SEP2018
     Route: 048
     Dates: start: 20180915
  6. FLUCONAZOLE. [Concomitant]
     Active Substance: FLUCONAZOLE
     Indication: OESOPHAGEAL CANDIDIASIS
     Route: 065
     Dates: start: 20180915
  7. ETOPOPHOS [Suspect]
     Active Substance: ETOPOSIDE PHOSPHATE
     Indication: TESTICULAR GERM CELL TUMOUR MIXED
     Dosage: INJECTION; REGIMEN #1
     Route: 065
     Dates: start: 20180903
  8. CEFEPIME [Concomitant]
     Active Substance: CEFEPIME HYDROCHLORIDE
     Indication: ANTIBIOTIC THERAPY
  9. PLATINOL [Suspect]
     Active Substance: CISPLATIN
     Indication: TESTICULAR GERM CELL TUMOUR MIXED
     Dosage: 40 MG, AS A PART OF PEB SCHEME
     Route: 065
     Dates: start: 20180903
  10. PANTOZOL [Concomitant]
     Active Substance: PANTOPRAZOLE SODIUM
     Indication: PRODUCT USED FOR UNKNOWN INDICATION
     Dosage: 40 MG, QD, PANTOZOL (PANTOPRAZOL) FILM-COATED TABLETS 40 MG PERORAL 1-0-0-0 SINCE 05SEP2018
     Route: 048
     Dates: start: 20180905

REACTIONS (8)
  - Oropharyngeal plaque [Recovered/Resolved]
  - Headache [Recovered/Resolved]
  - Asthenia [Recovered/Resolved]
  - Pancytopenia [Recovered/Resolved]
  - Hyponatraemia [Recovered/Resolved]
  - Vomiting [Recovered/Resolved]
  - Chest pain [Recovered/Resolved]
  - Chest discomfort [Recovered/Resolved]

NARRATIVE: CASE EVENT DATE: 201809
